FAERS Safety Report 5571050-7 (Version None)
Quarter: 2007Q4

REPORT INFORMATION
  Report Type: 
  Country: None (occurrence: None)
  Receive Date: 20071221
  Receipt Date: 20071213
  Transmission Date: 20080405
  Serious: Yes (Other)
  Sender: FDA-Public Use
  Company Number: DE-ROCHE-536784

PATIENT
  Age: 60 Year
  Sex: Female
  Weight: 100 kg

DRUGS (3)
  1. PEG-INTERFERON ALFA 2A (RO 25-8310) [Suspect]
     Dosage: FREQUENCY: 1X. DOSAGE FORM: FS.
     Route: 065
     Dates: start: 20060922, end: 20070709
  2. RIBAVIRIN [Suspect]
     Dosage: FREQUENCY: 2X1.
     Route: 065
     Dates: start: 20060922, end: 20070709
  3. AMANTADINE HCL [Suspect]
     Dosage: FREQUENCY: 2X100.
     Route: 065
     Dates: start: 20060922, end: 20070709

REACTIONS (2)
  - ANAEMIA [None]
  - BLOOD CREATININE INCREASED [None]
